FAERS Safety Report 9665875 (Version 1)
Quarter: 2013Q4

REPORT INFORMATION
  Report Type: Spontaneous
  Country: US (occurrence: US)
  Receive Date: 20131104
  Receipt Date: 20131104
  Transmission Date: 20140711
  Serious: No
  Sender: FDA-Public Use
  Company Number: US-009507513-1310USA014862

PATIENT
  Sex: Female

DRUGS (4)
  1. ASMANEX TWISTHALER [Suspect]
     Indication: COUGH
     Dosage: 2 PUFFS DAILY
     Route: 055
  2. CLARITIN [Concomitant]
  3. PRILOSEC [Concomitant]
  4. ZANTAC [Concomitant]

REACTIONS (3)
  - Drug dose omission [Unknown]
  - Product quality issue [Unknown]
  - Drug ineffective [Not Recovered/Not Resolved]
